FAERS Safety Report 6898626-9 (Version None)
Quarter: 2010Q3

REPORT INFORMATION
  Report Type: 
  Country: None (occurrence: None)
  Receive Date: 20100802
  Receipt Date: 20071105
  Transmission Date: 20110219
  Serious: No
  Sender: FDA-Public Use
  Company Number: US-PFIZER INC-2007094075

PATIENT
  Sex: Male
  Weight: 59 kg

DRUGS (8)
  1. LYRICA [Suspect]
     Indication: PAIN
     Dates: end: 20070101
  2. LYRICA [Suspect]
     Indication: PARAESTHESIA
  3. METFORMIN HCL [Concomitant]
  4. ACETYLSALICYLIC ACID SRT [Concomitant]
  5. TAMSULOSIN HYDROCHLORIDE [Concomitant]
  6. TYLENOL [Concomitant]
  7. TIMOLOL MALEATE [Concomitant]
  8. ALPHAGAN [Concomitant]

REACTIONS (1)
  - HYPOAESTHESIA [None]
